FAERS Safety Report 4842170-7 (Version None)
Quarter: 2005Q4

REPORT INFORMATION
  Report Type: 
  Country: None (occurrence: None)
  Receive Date: 20051130
  Receipt Date: 20051123
  Transmission Date: 20060501
  Serious: Yes (Death)
  Sender: FDA-Public Use
  Company Number: US-MERCK-0511USA04213

PATIENT
  Age: 68 Year
  Sex: Female
  Weight: 93 kg

DRUGS (6)
  1. VIOXX [Suspect]
     Indication: ARTHRITIS
     Route: 048
     Dates: start: 20031001, end: 20041101
  2. VIOXX [Suspect]
     Route: 048
     Dates: start: 20031001, end: 20041101
  3. VIOXX [Suspect]
     Indication: PAIN
     Route: 048
     Dates: start: 20031001, end: 20041101
  4. VIOXX [Suspect]
     Route: 048
     Dates: start: 20031001, end: 20041101
  5. ROLAIDS [Concomitant]
     Route: 065
  6. [THERAPY UNSPECIFIED] [Concomitant]
     Indication: ANALGESIC EFFECT
     Route: 065

REACTIONS (6)
  - BLOOD GLUCOSE INCREASED [None]
  - CHEST PAIN [None]
  - DEATH [None]
  - DYSPNOEA [None]
  - GENERAL PHYSICAL CONDITION ABNORMAL [None]
  - MENTAL IMPAIRMENT [None]
